FAERS Safety Report 4550792-6 (Version None)
Quarter: 2004Q4

REPORT INFORMATION
  Report Type: 
  Country: None (occurrence: None)
  Receive Date: 20041217
  Receipt Date: 20040930
  Transmission Date: 20050328
  Serious: No
  Sender: FDA-Public Use
  Company Number: 2004-BP-09114BP

PATIENT
  Age: 54 Year
  Sex: Female

DRUGS (4)
  1. SPIRIVA [Suspect]
     Indication: CHRONIC OBSTRUCTIVE AIRWAYS DISEASE
     Dosage: 18 MCG (18 MCG), IH
     Route: 055
     Dates: start: 20040922, end: 20040927
  2. PREDNISONE [Concomitant]
  3. TOPROL-XL [Concomitant]
  4. PREDNISONE [Concomitant]

REACTIONS (6)
  - AGITATION [None]
  - FEELING JITTERY [None]
  - HEADACHE [None]
  - INSOMNIA [None]
  - PALPITATIONS [None]
  - PRURITUS GENERALISED [None]
